FAERS Safety Report 12336481 (Version 1)
Quarter: 2016Q2

REPORT INFORMATION
  Report Type: Not Available
  Country: GB (occurrence: GB)
  Receive Date: 20160505
  Receipt Date: 20160505
  Transmission Date: 20160815
  Serious: Yes (Other)
  Sender: FDA-Public Use
  Company Number: GB-MUNDIPHARMA DS AND PHARMACOVIGILANCE-GBR-2016-0035812

PATIENT
  Age: 56 Year
  Sex: Female
  Weight: 93 kg

DRUGS (12)
  1. SOLIFENACIN [Concomitant]
     Active Substance: SOLIFENACIN
     Dosage: 1 DF, DAILY
     Dates: start: 20150908
  2. TRIMETHOPRIM. [Concomitant]
     Active Substance: TRIMETHOPRIM
     Dosage: 1 DF, BID
     Dates: start: 20160301, end: 20160308
  3. PRAVASTATIN [Concomitant]
     Active Substance: PRAVASTATIN\PRAVASTATIN SODIUM
     Dosage: 1 DF, DAILY
     Dates: start: 20150908
  4. PREMARIN [Concomitant]
     Active Substance: ESTROGENS, CONJUGATED
     Dosage: 1 DF, DAILY
     Dates: start: 20150908
  5. MORPHINE SULFATE. [Suspect]
     Active Substance: MORPHINE SULFATE
     Indication: PRODUCT USED FOR UNKNOWN INDICATION
     Dosage: UNK
     Route: 065
     Dates: start: 20160317
  6. AMOXICILLIN. [Concomitant]
     Active Substance: AMOXICILLIN
     Dosage: 1 DF, TID
     Dates: start: 20160201, end: 20160208
  7. IBUPROFEN. [Concomitant]
     Active Substance: IBUPROFEN
     Dosage: 1 DF, TID
     Dates: start: 20160317, end: 20160404
  8. LACIDIPINE [Concomitant]
     Active Substance: LACIDIPINE
     Dosage: 1 DF, 1DAILY
     Dates: start: 20150908
  9. LANSOPRAZOLE. [Concomitant]
     Active Substance: LANSOPRAZOLE
     Dosage: 1 DF, DAILY
     Dates: start: 20150908
  10. RAMIPRIL. [Concomitant]
     Active Substance: RAMIPRIL
     Dosage: 1 DF, DAILY
     Dates: start: 20150908
  11. INDAPAMIDE. [Concomitant]
     Active Substance: INDAPAMIDE
     Dosage: 1 DF, DAILY
     Dates: start: 20150908
  12. PARACETAMOL [Concomitant]
     Active Substance: ACETAMINOPHEN
     Dosage: 2 DF, QID
     Dates: start: 20160317, end: 20160414

REACTIONS (1)
  - Blood pressure increased [Recovered/Resolved]

NARRATIVE: CASE EVENT DATE: 20160418
